FAERS Safety Report 9167673 (Version 2)
Quarter: 2013Q4

REPORT INFORMATION
  Report Type: Spontaneous
  Country: GB (occurrence: None)
  Receive Date: 20130314
  Receipt Date: 20131011
  Transmission Date: 20140711
  Serious: Yes (Death, Hospitalization, Other)
  Sender: FDA-Public Use
  Company Number: AUR-APL-2013-00041

PATIENT
  Age: 10 Month
  Sex: Female
  Weight: 8.5 kg

DRUGS (9)
  1. ERYTHROMYCIN (ERYTHROMYCIN) [Suspect]
     Indication: NASOPHARYNGITIS
     Dates: start: 20121126
  2. LEVETIRACETAM (LEVETIRACETAM) [Suspect]
     Indication: EPILEPSY
     Dosage: 240 MG (120 MG, 2 IN 1 D)
     Route: 048
     Dates: start: 20120709, end: 20121128
  3. PHENYTOIN (PHENYTOIN) [Suspect]
     Indication: CONVULSION
     Route: 042
     Dates: start: 20121127, end: 20121127
  4. DIAZEPAM (DIAZEPAM) [Suspect]
     Indication: CONVULSION
     Route: 054
     Dates: start: 20121127, end: 20121127
  5. MIDAZOLAM (MIDAZOLAM) [Suspect]
     Indication: CONVULSION
     Dosage: 2.5 MG, AT 5 MINS AND 15 MINS, OROMUCOSAL USE
     Dates: start: 20121128, end: 20121128
  6. EPILIUM (VALPROATE SODIUM) [Suspect]
     Indication: CONVULSION
     Dosage: 280 MG (140 MG, 2 IN 1 D)
     Dates: start: 20120718, end: 20121128
  7. VALPROATE [Concomitant]
  8. KEPPRA(LEVETIRACETAM) [Concomitant]
  9. PARACETAMOL [Concomitant]

REACTIONS (8)
  - Nasopharyngitis [None]
  - Convulsion [None]
  - Neonatal respiratory acidosis [None]
  - Cardiac arrest neonatal [None]
  - Drug ineffective [None]
  - Drug interaction [None]
  - Tachycardia [None]
  - Hypoventilation [None]
